FAERS Safety Report 8313305-9 (Version None)
Quarter: 2012Q2

REPORT INFORMATION
  Report Type: 
  Country: None (occurrence: None)
  Receive Date: 20120426
  Receipt Date: 20120411
  Transmission Date: 20120825
  Serious: Yes (Other)
  Sender: FDA-Public Use
  Company Number: PHHY2012US034648

PATIENT
  Age: 7 Year
  Sex: Male

DRUGS (2)
  1. DEFEROXAMINE MESYLATE [Suspect]
     Indication: IRON OVERLOAD
     Dosage: 15 MG/KG, DAILY (FIVE DAYS PER WEEK)
     Route: 042
  2. DEFERASIROX [Suspect]
     Indication: IRON OVERLOAD

REACTIONS (2)
  - HEPATIC FIBROSIS [None]
  - HEPATIC NEOPLASM [None]
